FAERS Safety Report 5571346-9 (Version None)
Quarter: 2007Q4

REPORT INFORMATION
  Report Type: 
  Country: None (occurrence: None)
  Receive Date: 20071221
  Receipt Date: 20071023
  Transmission Date: 20080405
  Serious: No
  Sender: FDA-Public Use
  Company Number: A0668645A

PATIENT
  Age: 78 Year
  Sex: Female

DRUGS (23)
  1. FLONASE [Suspect]
     Indication: SINUSITIS
     Dosage: 2SPR PER DAY
     Route: 045
  2. FLONASE [Suspect]
     Dosage: 2SPR PER DAY
     Route: 045
  3. NIFEDIPINE [Concomitant]
  4. SYNTHROID [Concomitant]
  5. ARTIFICIAL TEARS [Concomitant]
  6. OSCAL [Concomitant]
  7. CELEXA [Concomitant]
  8. NEXIUM [Concomitant]
  9. ASPIRIN [Concomitant]
  10. IRON [Concomitant]
  11. BUSPAR [Concomitant]
  12. XANAX [Concomitant]
  13. NUTRISON [Concomitant]
  14. UNKNOWN MEDICATION [Concomitant]
  15. MULTIPLE VITAMINE [Concomitant]
  16. VITAMIN B COMPLEX CAP [Concomitant]
  17. LECITHIN [Concomitant]
  18. OMEGA-3 [Concomitant]
  19. VITAMIN E [Concomitant]
  20. ASCORBIC ACID [Concomitant]
  21. ATROVENT [Concomitant]
  22. GAS-X [Concomitant]
  23. SENNA [Concomitant]

REACTIONS (3)
  - DRUG INEFFECTIVE [None]
  - PHARMACEUTICAL PRODUCT COMPLAINT [None]
  - SINUSITIS [None]
